FAERS Safety Report 13897680 (Version 1)
Quarter: 2017Q3

REPORT INFORMATION
  Report Type: Spontaneous
  Country: FR (occurrence: FR)
  Receive Date: 20170823
  Receipt Date: 20170823
  Transmission Date: 20171127
  Serious: Yes (Death, Life-Threatening)
  Sender: FDA-Public Use
  Company Number: FR-009507513-1708FRA009519

PATIENT
  Sex: Male
  Weight: 8.7 kg

DRUGS (11)
  1. VANCOMYCIN MYLAN [Suspect]
     Active Substance: VANCOMYCIN
     Indication: SEPSIS
     Dosage: UNK
     Route: 042
     Dates: start: 20170616, end: 20170630
  2. MABTHERA [Suspect]
     Active Substance: RITUXIMAB
     Dosage: CYCLE 2
     Route: 042
     Dates: start: 20170620
  3. PIPERACILLIN AND TAZOBACTAM [Suspect]
     Active Substance: PIPERACILLIN SODIUM\TAZOBACTAM SODIUM
     Indication: SEPSIS
     Dosage: UNK
     Route: 042
     Dates: start: 20170616
  4. FASTURTEC [Suspect]
     Active Substance: RASBURICASE
     Dosage: CYCLE 3
     Route: 042
     Dates: start: 20170709, end: 20170709
  5. ADCETRIS [Suspect]
     Active Substance: BRENTUXIMAB VEDOTIN
     Dosage: CYCLE 2
     Route: 042
     Dates: start: 20170628, end: 20170628
  6. FASTURTEC [Suspect]
     Active Substance: RASBURICASE
     Indication: TUMOUR INVASION
     Dosage: CYCLE 1
     Route: 042
     Dates: start: 20170628
  7. MABTHERA [Suspect]
     Active Substance: RITUXIMAB
     Indication: EPSTEIN-BARR VIRUS ASSOCIATED LYMPHOPROLIFERATIVE DISORDER
     Dosage: CYCLE 1
     Route: 042
     Dates: start: 20170616
  8. MABTHERA [Suspect]
     Active Substance: RITUXIMAB
     Dosage: CYCLE 3
     Route: 042
     Dates: start: 20170624, end: 20170624
  9. ADCETRIS [Suspect]
     Active Substance: BRENTUXIMAB VEDOTIN
     Indication: EPSTEIN-BARR VIRUS ASSOCIATED LYMPHOPROLIFERATIVE DISORDER
     Dosage: CYCLE 1
     Route: 042
     Dates: start: 20170621
  10. CANCIDAS [Suspect]
     Active Substance: CASPOFUNGIN ACETATE
     Indication: SEPSIS
     Dosage: UNK
     Route: 042
     Dates: start: 20170616
  11. FASTURTEC [Suspect]
     Active Substance: RASBURICASE
     Dosage: CYCLE 2
     Route: 042
     Dates: start: 20170701

REACTIONS (2)
  - Toxic epidermal necrolysis [Fatal]
  - Bone marrow failure [Fatal]

NARRATIVE: CASE EVENT DATE: 2017
